FAERS Safety Report 23425704 (Version 2)
Quarter: 2024Q1

REPORT INFORMATION
  Report Type: Report from Study
  Country: EG (occurrence: EG)
  Receive Date: 20240122
  Receipt Date: 20240212
  Transmission Date: 20240409
  Serious: Yes (Other)
  Sender: FDA-Public Use
  Company Number: EG-002147023-NVSC2022EG189452

PATIENT
  Age: 7 Year
  Sex: Male
  Weight: 23 kg

DRUGS (9)
  1. OMNITROPE [Suspect]
     Active Substance: SOMATROPIN
     Indication: Growth hormone deficiency
     Dosage: 0.7 MG, QD
     Route: 058
     Dates: start: 20220117
  2. OMNITROPE [Suspect]
     Active Substance: SOMATROPIN
     Dosage: 0.9 MG, QD
     Route: 058
     Dates: start: 20220117
  3. Antox [Concomitant]
     Indication: Malnutrition
     Dosage: TWICE WEEKLY
     Route: 048
     Dates: start: 202210, end: 20230605
  4. Feroglobin [Concomitant]
     Indication: Malnutrition
     Dosage: ONCE DAILY AFTER LUNCH DAY AFTER DAY
     Route: 048
     Dates: start: 202312
  5. ARGININE [Concomitant]
     Active Substance: ARGININE
     Indication: Malnutrition
     Dosage: 1 CAP BEFORE SLEEP DAY AFTER DAY
     Route: 048
     Dates: start: 202312
  6. MELATONIN [Concomitant]
     Active Substance: MELATONIN
     Indication: Malnutrition
     Dosage: 1 CAP BEFORE SLEEP DAY AFTER DAY
     Route: 048
     Dates: start: 202312
  7. Sanso d3 [Concomitant]
     Indication: Malnutrition
     Dosage: TWICE WEEKLY
     Route: 048
     Dates: start: 202210, end: 20230605
  8. VIDROP [Concomitant]
     Indication: Malnutrition
     Dosage: ONE DROP AFTER BREAKFAST
     Route: 048
     Dates: start: 202306, end: 202312
  9. ZINC [Concomitant]
     Active Substance: PYRITHIONE ZINC\ZINC\ZINC CHLORIDE
     Indication: Malnutrition
     Dosage: 3 CM BEFORE DINNER
     Route: 048
     Dates: start: 202306, end: 202312

REACTIONS (16)
  - Palpitations [Not Recovered/Not Resolved]
  - Angina pectoris [Recovering/Resolving]
  - Nose deformity [Not Recovered/Not Resolved]
  - COVID-19 [Recovered/Resolved]
  - Injection site haemorrhage [Recovered/Resolved]
  - Hirsutism [Not Recovered/Not Resolved]
  - Dysphemia [Recovered/Resolved]
  - Incorrect dose administered [Not Recovered/Not Resolved]
  - Poor quality device used [Unknown]
  - Wrong technique in device usage process [Unknown]
  - Multiple use of single-use product [Unknown]
  - Incorrect route of product administration [Unknown]
  - Wrong technique in product usage process [Unknown]
  - Wrong technique in device usage process [Unknown]
  - Wrong technique in product usage process [Not Recovered/Not Resolved]
  - Expired device used [Unknown]

NARRATIVE: CASE EVENT DATE: 20220117
